FAERS Safety Report 8827544 (Version 3)
Quarter: 2012Q4

REPORT INFORMATION
  Report Type: Report from Study
  Country: DE (occurrence: DE)
  Receive Date: 20121005
  Receipt Date: 20121129
  Transmission Date: 20130627
  Serious: Yes (Hospitalization, Other)
  Sender: FDA-Public Use
  Company Number: DE-ABBOTT-12P-062-0988465-00

PATIENT
  Age: 47 Year
  Sex: Female
  Weight: 60 kg

DRUGS (3)
  1. HUMIRA [Suspect]
     Indication: CROHN^S DISEASE
     Route: 058
     Dates: start: 2010, end: 201205
  2. HUMIRA [Suspect]
     Route: 058
     Dates: start: 201208
  3. DECORTIN [Concomitant]
     Indication: CROHN^S DISEASE
     Dates: start: 20120817, end: 20120822

REACTIONS (6)
  - Ileal stenosis [Recovered/Resolved]
  - Erysipelas [Recovered/Resolved]
  - Abscess [Unknown]
  - Anastomotic complication [Unknown]
  - Chills [Recovering/Resolving]
  - Pyrexia [Recovered/Resolved]
